FAERS Safety Report 11448952 (Version 2)
Quarter: 2015Q4

REPORT INFORMATION
  Report Type: Spontaneous
  Country: US (occurrence: US)
  Receive Date: 20150902
  Receipt Date: 20151009
  Transmission Date: 20160304
  Serious: Yes (Congenital Anomaly, Other)
  Sender: FDA-Public Use
  Company Number: US-RB PHARMACEUTICALS LIMITED-RB-082611-2015

PATIENT
  Age: 35 Year
  Sex: Female

DRUGS (3)
  1. BUPRENORPHINE GENERIC TAB [Suspect]
     Active Substance: BUPRENORPHINE
     Indication: DRUG DEPENDENCE
     Dosage: 8 MG, QD, ABOUT 3 MONTHS
     Route: 060
     Dates: start: 201504, end: 201507
  2. BUTRANS [Suspect]
     Active Substance: BUPRENORPHINE
     Dosage: UNK, TARPERED DOSES, QD
     Route: 062
     Dates: start: 201507, end: 201509
  3. BUTRANS [Suspect]
     Active Substance: BUPRENORPHINE
     Indication: DRUG DEPENDENCE
     Dosage: 20 MG, QD
     Route: 062
     Dates: start: 2015, end: 2015

REACTIONS (3)
  - Maternal exposure during pregnancy [Recovered/Resolved]
  - Chondrodystrophy [Not Recovered/Not Resolved]
  - Congenital musculoskeletal anomaly [Unknown]

NARRATIVE: CASE EVENT DATE: 2015
